FAERS Safety Report 18686166 (Version 1)
Quarter: 2020Q4

REPORT INFORMATION
  Report Type: Spontaneous
  Country: US (occurrence: US)
  Receive Date: 20201231
  Receipt Date: 20201231
  Transmission Date: 20210114
  Serious: Yes (Hospitalization)
  Sender: FDA-Public Use
  Company Number: US-LUPIN PHARMACEUTICALS INC.-2020-08229

PATIENT
  Age: 65 Year
  Sex: Female

DRUGS (9)
  1. RIFAXIMIN. [Suspect]
     Active Substance: RIFAXIMIN
     Indication: HYPERAMMONAEMIC ENCEPHALOPATHY
     Dosage: UNK
     Route: 065
  2. LACTULOSE. [Suspect]
     Active Substance: LACTULOSE
     Indication: HYPERAMMONAEMIC ENCEPHALOPATHY
     Dosage: UNK
     Route: 065
  3. VITAMIN E [Concomitant]
     Active Substance: .ALPHA.-TOCOPHEROL
     Indication: DRUG THERAPY
     Dosage: UNK
     Route: 065
  4. ZINC. [Concomitant]
     Active Substance: ZINC
     Indication: MINERAL SUPPLEMENTATION
     Dosage: UNK
     Route: 065
  5. ACETAMINOPHEN. [Concomitant]
     Active Substance: ACETAMINOPHEN
     Indication: PRODUCT USED FOR UNKNOWN INDICATION
     Dosage: 650 MILLIGRAM (ADMINISTERED THE NIGHT BEFORE AND THE DAY OF CLINICAL DETERIORATION DURING ENTIRE ADM
     Route: 065
  6. VITAMINS C [Concomitant]
     Indication: DRUG THERAPY
     Dosage: UNK
     Route: 065
  7. POLYETHYLENE GLYCOL [Suspect]
     Active Substance: POLYETHYLENE GLYCOLS
     Indication: HYPERAMMONAEMIC ENCEPHALOPATHY
     Dosage: UNK
     Route: 065
  8. DEXTROSE. [Suspect]
     Active Substance: DEXTROSE
     Indication: HYPERAMMONAEMIC ENCEPHALOPATHY
     Dosage: UNK
     Route: 042
  9. SODIUM BICARBONATE. [Concomitant]
     Active Substance: SODIUM BICARBONATE
     Indication: DRUG THERAPY
     Dosage: UNK
     Route: 065

REACTIONS (2)
  - Drug ineffective for unapproved indication [Unknown]
  - Off label use [Unknown]
